FAERS Safety Report 15665818 (Version 2)
Quarter: 2019Q1

REPORT INFORMATION
  Report Type: Report from Study
  Country: US (occurrence: US)
  Receive Date: 20181128
  Receipt Date: 20190212
  Transmission Date: 20190417
  Serious: Yes (Other)
  Sender: FDA-Public Use
  Company Number: PHEH2018US049629

PATIENT
  Sex: Male

DRUGS (1)
  1. KYMRIAH [Suspect]
     Active Substance: TISAGENLECLEUCEL
     Indication: DIFFUSE LARGE B-CELL LYMPHOMA
     Dosage: 1 DF, ONCE/SINGLE (ONE SINGLE DOSE)
     Route: 065
     Dates: start: 20161013, end: 20161013

REACTIONS (2)
  - Nasopharyngitis [Unknown]
  - Immune system disorder [Unknown]
